FAERS Safety Report 6655637-6 (Version None)
Quarter: 2010Q1

REPORT INFORMATION
  Report Type: 
  Country: None (occurrence: None)
  Receive Date: 20100326
  Receipt Date: 20100326
  Transmission Date: 20100710
  Serious: Yes (Hospitalization)
  Sender: FDA-Public Use
  Company Number: None

PATIENT
  Sex: Female
  Weight: 95 kg

DRUGS (6)
  1. DAUNORUBICIN HCL [Suspect]
     Dosage: 165 MG
     Dates: end: 20100315
  2. PEG-L ASPARAGINASE (PEGASPARGASE, ONCOSPAR) [Suspect]
     Dosage: 5500 IU
     Dates: end: 20100303
  3. PREDNISONE [Suspect]
     Dosage: 2460 MG
     Dates: end: 20100322
  4. VINCRISTINE [Suspect]
     Dosage: 6 MG
     Dates: end: 20100315
  5. CYTARABINE [Suspect]
     Dosage: 70 MG
     Dates: end: 20100226
  6. METHOTREXATE [Suspect]
     Dosage: 15 MG
     Dates: end: 20100308

REACTIONS (2)
  - BLOOD BILIRUBIN INCREASED [None]
  - BLOOD BILIRUBIN UNCONJUGATED INCREASED [None]
